FAERS Safety Report 8193806-7 (Version None)
Quarter: 2012Q1

REPORT INFORMATION
  Report Type: 
  Country: None (occurrence: None)
  Receive Date: 20120308
  Receipt Date: 20120229
  Transmission Date: 20120608
  Serious: Yes (Hospitalization, Other)
  Sender: FDA-Public Use
  Company Number: PHHY2012FR017884

PATIENT
  Age: 64 Year
  Sex: Female

DRUGS (8)
  1. PREDNISONE TAB [Suspect]
     Indication: RHEUMATOID ARTHRITIS
     Dosage: 0.25 MG/KG, UNK
  2. PREDNISONE TAB [Suspect]
     Dosage: 15 MG, QD
  3. ROSUVASTATIN [Concomitant]
  4. PERINDOPRIL ERBUMINE [Concomitant]
  5. ASPIRIN [Concomitant]
  6. FUROSEMIDE [Concomitant]
  7. METFORMIN HCL [Concomitant]
  8. ATENOLOL [Concomitant]

REACTIONS (15)
  - PYREXIA [None]
  - MULTI-ORGAN FAILURE [None]
  - SOFT TISSUE NECROSIS [None]
  - PAIN IN EXTREMITY [None]
  - LIVEDO RETICULARIS [None]
  - TENDERNESS [None]
  - RENAL FAILURE ACUTE [None]
  - NECROTISING FASCIITIS [None]
  - CONFUSIONAL STATE [None]
  - ERYTHEMA [None]
  - SEPTIC SHOCK [None]
  - SWELLING [None]
  - COMA [None]
  - HYPOTENSION [None]
  - DISSEMINATED INTRAVASCULAR COAGULATION [None]
